FAERS Safety Report 4504444-9 (Version None)
Quarter: 2004Q4

REPORT INFORMATION
  Report Type: 
  Country: None (occurrence: None)
  Receive Date: 20041116
  Receipt Date: 20041108
  Transmission Date: 20050328
  Serious: Yes (Hospitalization)
  Sender: FDA-Public Use
  Company Number: 2004-04286

PATIENT
  Age: 43 Year
  Sex: Female
  Weight: 102.9 kg

DRUGS (4)
  1. MONODOX [Suspect]
     Indication: ROSACEA
     Dosage: 100 MG, BID, ORAL
     Route: 048
     Dates: start: 20040306, end: 20040506
  2. AZELAIC ACID [Suspect]
     Indication: ROSACEA
     Dosage: APPLIED 2X/DAY, TOPICAL
     Route: 061
     Dates: start: 20040306, end: 20040506
  3. DICYCLOMINE HYDROCHLORIDE (DICYCLOVERINE HYDROCHLORIDE) [Concomitant]
  4. ONE-A-DAY (RETINOL) [Concomitant]

REACTIONS (8)
  - BLOOD PRESSURE SYSTOLIC INCREASED [None]
  - CAROTID ARTERY ATHEROMA [None]
  - CAROTID ARTERY STENOSIS [None]
  - ELECTROENCEPHALOGRAM ABNORMAL [None]
  - MENINGIOMA [None]
  - MIGRAINE [None]
  - STRESS SYMPTOMS [None]
  - TREATMENT NONCOMPLIANCE [None]
